FAERS Safety Report 5328751-5 (Version None)
Quarter: 2007Q2

REPORT INFORMATION
  Report Type: 
  Country: None (occurrence: None)
  Receive Date: 20070516
  Receipt Date: 20070516
  Transmission Date: 20071010
  Serious: Yes (Other)
  Sender: FDA-Public Use
  Company Number: None

PATIENT
  Age: 65 Year
  Sex: Female
  Weight: 58.9676 kg

DRUGS (1)
  1. TAXOTERE [Suspect]
     Indication: PANCREATIC DISORDER
     Dosage: 45 WEEKLY IV
     Route: 042
     Dates: start: 20070403, end: 20070515

REACTIONS (4)
  - BACK PAIN [None]
  - DYSPNOEA [None]
  - ERYTHEMA [None]
  - FLUSHING [None]
